FAERS Safety Report 6187330-0 (Version None)
Quarter: 2009Q2

REPORT INFORMATION
  Report Type: 
  Country: None (occurrence: None)
  Receive Date: 20090512
  Receipt Date: 20090501
  Transmission Date: 20091009
  Serious: Yes (Other)
  Sender: FDA-Public Use
  Company Number: US-JNJFOC-20090500990

PATIENT
  Sex: Female
  Weight: 58.97 kg

DRUGS (3)
  1. REMICADE [Suspect]
     Dosage: 700 -900MG
     Route: 042
  2. REMICADE [Suspect]
     Dosage: 700 -900MG
     Route: 042
  3. REMICADE [Suspect]
     Indication: RHEUMATOID ARTHRITIS
     Dosage: 700 -900MG
     Route: 042

REACTIONS (3)
  - NONSPECIFIC REACTION [None]
  - SWELLING [None]
  - THROMBOSIS [None]
